FAERS Safety Report 7034830-7 (Version None)
Quarter: 2010Q4

REPORT INFORMATION
  Report Type: 
  Country: None (occurrence: None)
  Receive Date: 20101008
  Receipt Date: 20100929
  Transmission Date: 20110411
  Serious: Yes (Hospitalization)
  Sender: FDA-Public Use
  Company Number: JP-ROCHE-713717

PATIENT
  Sex: Female
  Weight: 50 kg

DRUGS (9)
  1. TOCILIZUMAB [Suspect]
     Indication: RHEUMATOID ARTHRITIS
     Route: 041
     Dates: start: 20090319, end: 20090319
  2. RHEUMATREX [Concomitant]
     Route: 048
  3. PREDONINE [Concomitant]
     Route: 048
     Dates: end: 20090321
  4. PREDONINE [Concomitant]
     Route: 048
     Dates: start: 20090522, end: 20090827
  5. FOLIAMIN [Concomitant]
     Route: 048
  6. LOXONIN [Concomitant]
     Route: 048
  7. GASTER D [Concomitant]
     Route: 048
  8. BONALON [Concomitant]
     Route: 048
  9. ONEALFA [Concomitant]
     Route: 048

REACTIONS (1)
  - MALAISE [None]
